FAERS Safety Report 17748706 (Version 4)
Quarter: 2021Q2

REPORT INFORMATION
  Report Type: Spontaneous
  Country: US (occurrence: US)
  Receive Date: 20200505
  Receipt Date: 20210622
  Transmission Date: 20210716
  Serious: Yes (Other)
  Sender: FDA-Public Use
  Company Number: US-GILEAD-2020-0463032

PATIENT
  Age: 45 Year
  Sex: Female
  Weight: 146.03 kg

DRUGS (18)
  1. ATRIPLA [Suspect]
     Active Substance: EFAVIRENZ\EMTRICITABINE\TENOFOVIR DISOPROXIL FUMARATE
     Dosage: UNK
     Route: 048
     Dates: start: 200711, end: 2016
  2. STRIBILD [Suspect]
     Active Substance: COBICISTAT\ELVITEGRAVIR\EMTRICITABINE\TENOFOVIR DISOPROXIL FUMARATE
     Indication: HIV INFECTION
     Dosage: UNK
     Route: 048
     Dates: start: 201503, end: 201909
  3. ACETAMINOPHEN. [Concomitant]
     Active Substance: ACETAMINOPHEN
  4. DICLOFENAC [Concomitant]
     Active Substance: DICLOFENAC
  5. COMBIVENT [Concomitant]
     Active Substance: ALBUTEROL SULFATE\IPRATROPIUM BROMIDE
  6. ATRIPLA [Suspect]
     Active Substance: EFAVIRENZ\EMTRICITABINE\TENOFOVIR DISOPROXIL FUMARATE
     Indication: HIV INFECTION
     Dosage: UNK
     Route: 048
     Dates: start: 200901, end: 201503
  7. DEPAKOTE [Concomitant]
     Active Substance: DIVALPROEX SODIUM
  8. TETRACYCLINE [Concomitant]
     Active Substance: TETRACYCLINE
  9. NAPROXEN. [Concomitant]
     Active Substance: NAPROXEN
  10. BACTRIM [Concomitant]
     Active Substance: SULFAMETHOXAZOLE\TRIMETHOPRIM
  11. DILANTIN SODIUM [Concomitant]
     Active Substance: PHENYTOIN SODIUM
  12. PENICILLIN B [Concomitant]
     Active Substance: PHENETICILLIN
  13. STRIBILD [Suspect]
     Active Substance: COBICISTAT\ELVITEGRAVIR\EMTRICITABINE\TENOFOVIR DISOPROXIL FUMARATE
     Dosage: UNK
     Route: 048
     Dates: start: 2016, end: 201909
  14. AMITRIPTYLINE [Concomitant]
     Active Substance: AMITRIPTYLINE
  15. IBUPROFEN. [Concomitant]
     Active Substance: IBUPROFEN
  16. AMOXICILLIN. [Concomitant]
     Active Substance: AMOXICILLIN
  17. TEGRETOL [Concomitant]
     Active Substance: CARBAMAZEPINE
  18. DOVATO [Concomitant]
     Active Substance: DOLUTEGRAVIR SODIUM\LAMIVUDINE

REACTIONS (12)
  - Drug ineffective [Unknown]
  - Dysstasia [Unknown]
  - Lower limb fracture [Recovered/Resolved]
  - Emotional distress [Unknown]
  - Muscular weakness [Unknown]
  - Wrist fracture [Recovered/Resolved]
  - Pain [Unknown]
  - Osteopenia [Not Recovered/Not Resolved]
  - Walking aid user [Unknown]
  - Anxiety [Not Recovered/Not Resolved]
  - Bone density decreased [Unknown]
  - Depression [Not Recovered/Not Resolved]

NARRATIVE: CASE EVENT DATE: 201905
